FAERS Safety Report 9170986 (Version 1)
Quarter: 2013Q1

REPORT INFORMATION
  Report Type: Spontaneous
  Country: US (occurrence: None)
  Receive Date: 20130311
  Receipt Date: 20130311
  Transmission Date: 20140127
  Serious: Yes (Other)
  Sender: FDA-Public Use
  Company Number: CIP-2013-00052

PATIENT
  Sex: Female

DRUGS (9)
  1. CARBOPLATIN INJECTION DRY(CARBOPLATIN)(INFUSION) [Suspect]
     Indication: OVARIAN CANCER
     Dosage: AUC 6 (DAY 1;REPEATED Q 21 DAYS;DOSE LEVEL IV),INTRAPERITONEAL
     Route: 042
  2. CARBOPLATIN INJECTION DRY(CARBOPLATIN)(INFUSION) [Suspect]
     Indication: FALLOPIAN TUBE CANCER
     Dosage: AUC 6 (DAY 1;REPEATED Q 21 DAYS;DOSE LEVEL IV),INTRAPERITONEAL
     Route: 042
  3. CARBOPLATIN INJECTION DRY(CARBOPLATIN)(INFUSION) [Suspect]
     Indication: MALIGNANT PERITONEAL NEOPLASM
     Dosage: AUC 6 (DAY 1;REPEATED Q 21 DAYS;DOSE LEVEL IV),INTRAPERITONEAL
     Route: 042
  4. PACLITAXEL [Suspect]
     Indication: MALIGNANT PERITONEAL NEOPLASM
     Dosage: 60 MG/M2,DAY 8;REPEATED EVERY 21?DAYS), INTRAPERITONEAL
  5. PACLITAXEL [Suspect]
     Indication: OVARIAN CANCER
     Dosage: 60 MG/M2,DAY 8;REPEATED EVERY 21?DAYS), INTRAPERITONEAL
  6. PACLITAXEL [Suspect]
     Indication: FALLOPIAN TUBE CANCER
     Dosage: 60 MG/M2,DAY 8;REPEATED EVERY 21?DAYS), INTRAPERITONEAL
  7. DOCETAXEL (DOCETAXEL) (INFUSION) [Suspect]
     Indication: MALIGNANT PERITONEAL NEOPLASM
     Dosage: :(75 MG/M2,DAY 1; DOSE LEVEL IV),INTRAVENOUS (NOT OTHERWISE SPECIFIED)
     Route: 042
  8. DOCETAXEL (DOCETAXEL) (INFUSION) [Suspect]
     Indication: OVARIAN CANCER
     Dosage: :(75 MG/M2,DAY 1; DOSE LEVEL IV),INTRAVENOUS (NOT OTHERWISE SPECIFIED)
     Route: 042
  9. DOCETAXEL (DOCETAXEL) (INFUSION) [Suspect]
     Indication: FALLOPIAN TUBE CANCER
     Dosage: :(75 MG/M2,DAY 1; DOSE LEVEL IV),INTRAVENOUS (NOT OTHERWISE SPECIFIED)
     Route: 042

REACTIONS (1)
  - Pulmonary embolism [None]
